FAERS Safety Report 6714925-5 (Version None)
Quarter: 2010Q2

REPORT INFORMATION
  Report Type: 
  Country: None (occurrence: None)
  Receive Date: 20100507
  Receipt Date: 20100329
  Transmission Date: 20101027
  Serious: Yes (Life-Threatening, Hospitalization, Other)
  Sender: FDA-Public Use
  Company Number: US-BAYER-200942556NA

PATIENT
  Age: 36 Year
  Sex: Female
  Weight: 100 kg

DRUGS (14)
  1. YASMIN [Suspect]
     Indication: ORAL CONTRACEPTION
     Route: 048
     Dates: start: 20031101, end: 20080121
  2. PROZAC [Concomitant]
  3. EFFEXOR [Concomitant]
  4. ASPIRIN [Concomitant]
  5. ADVAIR DISKUS 100/50 [Concomitant]
     Dosage: 250/ 50
  6. ONDANSETRON HYDROCHLORIDE [Concomitant]
  7. HYDROCODONE BITARTRATE AND ACETAMINOPHEN [Concomitant]
     Dosage: 5-500MG
  8. CEFADROXIL [Concomitant]
  9. PROXY-NAPAP [Concomitant]
     Dosage: 100-650
  10. PANTOPRAZOLE SODIUM [Concomitant]
  11. ZYVOX [Concomitant]
  12. JANTOVEN [Concomitant]
  13. ALLEGRA [Concomitant]
  14. LEVORA 0.15/30-28 [Concomitant]

REACTIONS (18)
  - ABDOMINOPLASTY [None]
  - BACK PAIN [None]
  - DEEP VEIN THROMBOSIS [None]
  - DIZZINESS [None]
  - ELECTIVE SURGERY [None]
  - HAEMORRHAGIC OVARIAN CYST [None]
  - HYPERCOAGULATION [None]
  - IMPAIRED WORK ABILITY [None]
  - INJURY [None]
  - LIPECTOMY [None]
  - OEDEMA PERIPHERAL [None]
  - OVARIAN CYST RUPTURED [None]
  - PAIN IN EXTREMITY [None]
  - PHLEBITIS SUPERFICIAL [None]
  - POST THROMBOTIC SYNDROME [None]
  - PULMONARY EMBOLISM [None]
  - PYREXIA [None]
  - VENOUS INSUFFICIENCY [None]
